FAERS Safety Report 7431955-9 (Version None)
Quarter: 2011Q2

REPORT INFORMATION
  Report Type: 
  Country: None (occurrence: None)
  Receive Date: 20110419
  Receipt Date: 20110419
  Transmission Date: 20111010
  Serious: Yes (Life-Threatening, Hospitalization)
  Sender: FDA-Public Use
  Company Number: None

PATIENT
  Age: 33 Year
  Sex: Male
  Weight: 91.6266 kg

DRUGS (1)
  1. DEPAKENE [Suspect]
     Indication: HYPERAMMONAEMIC ENCEPHALOPATHY
     Dosage: 1000MG QID PO
     Route: 048
     Dates: start: 19850404, end: 20100810

REACTIONS (5)
  - EXECUTIVE DYSFUNCTION [None]
  - HYPERAMMONAEMIC ENCEPHALOPATHY [None]
  - CEREBRAL ATROPHY [None]
  - DEMENTIA [None]
  - GENERAL PHYSICAL HEALTH DETERIORATION [None]
